FAERS Safety Report 8185781-6 (Version None)
Quarter: 2012Q1

REPORT INFORMATION
  Report Type: 
  Country: None (occurrence: None)
  Receive Date: 20120305
  Receipt Date: 20120305
  Transmission Date: 20120608
  Serious: Yes (Hospitalization)
  Sender: FDA-Public Use
  Company Number: AU-ABBOTT-12P-008-0905773-00

PATIENT
  Sex: Female
  Weight: 83 kg

DRUGS (1)
  1. HUMIRA [Suspect]
     Indication: HIDRADENITIS
     Route: 058

REACTIONS (4)
  - WOUND SECRETION [None]
  - DRUG INEFFECTIVE [None]
  - OFF LABEL USE [None]
  - HIDRADENITIS [None]
